FAERS Safety Report 7217571-2 (Version None)
Quarter: 2010Q4

REPORT INFORMATION
  Report Type: 
  Country: None (occurrence: None)
  Receive Date: 20101230
  Receipt Date: 20101221
  Transmission Date: 20110411
  Serious: Yes (Hospitalization, Other)
  Sender: FDA-Public Use
  Company Number: 2009SP020292

PATIENT
  Age: 29 Year
  Sex: Female
  Weight: 72.5755 kg

DRUGS (2)
  1. NUVARING [Suspect]
     Indication: CONTRACEPTION
     Dates: start: 20060322, end: 20070224
  2. TYLENOL W/ CODEINE NO. 3 [Concomitant]

REACTIONS (28)
  - ABDOMINAL PAIN [None]
  - ANXIETY [None]
  - ATELECTASIS [None]
  - CARDIOGENIC SHOCK [None]
  - CARDIOMEGALY [None]
  - CONTUSION [None]
  - DEEP VEIN THROMBOSIS [None]
  - DRUG EXPOSURE BEFORE PREGNANCY [None]
  - ECCHYMOSIS [None]
  - HAEMATOCRIT DECREASED [None]
  - HAEMOGLOBIN DECREASED [None]
  - INTERNATIONAL NORMALISED RATIO INCREASED [None]
  - LIMB INJURY [None]
  - LOCAL SWELLING [None]
  - LOSS OF CONSCIOUSNESS [None]
  - MEDICAL DEVICE COMPLICATION [None]
  - NEPHROLITHIASIS [None]
  - NO THERAPEUTIC RESPONSE [None]
  - OEDEMA [None]
  - OROPHARYNGEAL PAIN [None]
  - PAIN IN EXTREMITY [None]
  - PLATELET COUNT DECREASED [None]
  - PLEURAL EFFUSION [None]
  - PREGNANCY [None]
  - PULMONARY EMBOLISM [None]
  - RETROPERITONEAL HAEMATOMA [None]
  - RIGHT VENTRICULAR FAILURE [None]
  - SUPRAVENTRICULAR TACHYCARDIA [None]
